FAERS Safety Report 14982892 (Version 2)
Quarter: 2018Q3

REPORT INFORMATION
  Report Type: Report from Study
  Country: None (occurrence: US)
  Receive Date: 20180607
  Receipt Date: 20180713
  Transmission Date: 20181010
  Serious: Yes (Other)
  Sender: FDA-Public Use
  Company Number: US-ABBVIE-18K-163-2379151-00

PATIENT
  Age: 23 Year
  Sex: Male

DRUGS (1)
  1. HUMIRA [Suspect]
     Active Substance: ADALIMUMAB
     Indication: CROHN^S DISEASE
     Route: 058
     Dates: end: 201806

REACTIONS (3)
  - Ileal stenosis [Recovering/Resolving]
  - Gastrointestinal obstruction [Not Recovered/Not Resolved]
  - Gastrointestinal infection [Unknown]

NARRATIVE: CASE EVENT DATE: 201805
